FAERS Safety Report 9314815 (Version 2)
Quarter: 2013Q3

REPORT INFORMATION
  Report Type: Spontaneous
  Country: US (occurrence: US)
  Receive Date: 20130529
  Receipt Date: 20130807
  Transmission Date: 20140515
  Serious: Yes (Disabling)
  Sender: FDA-Public Use
  Company Number: US-PFIZER INC-2013162269

PATIENT
  Age: 32 Year
  Sex: Male

DRUGS (7)
  1. NEURONTIN [Suspect]
     Indication: BACK PAIN
     Dosage: 600 MG, 2 TAB AM, 1 TAB NOON, 2 TAB PM
     Route: 048
  2. SUBOXONE [Concomitant]
     Dosage: UNK
  3. ACETAMINOPHEN [Concomitant]
     Dosage: UNK
  4. AMITRIPTYLINE [Concomitant]
     Dosage: 100 MG
  5. LEXAPRO [Concomitant]
     Dosage: 20 MG
  6. METOPROLOL [Concomitant]
     Dosage: 50 MG
  7. MOTRIN [Concomitant]
     Dosage: 800 MG

REACTIONS (1)
  - Accident [Unknown]
